FAERS Safety Report 9494420 (Version 2)
Quarter: 2013Q4

REPORT INFORMATION
  Report Type: Spontaneous
  Country: US (occurrence: US)
  Receive Date: 20130903
  Receipt Date: 20131105
  Transmission Date: 20140711
  Serious: No
  Sender: FDA-Public Use
  Company Number: US-009507513-1309USA000663

PATIENT
  Age: 24 Year
  Sex: Female
  Weight: 58.96 kg

DRUGS (1)
  1. NUVARING [Suspect]
     Indication: CONTRACEPTION
     Dosage: UNK,INSERT MONTHLY
     Route: 067
     Dates: start: 201108

REACTIONS (3)
  - Device expulsion [Recovered/Resolved]
  - Drug dose omission [Unknown]
  - Product quality issue [Unknown]
